FAERS Safety Report 6522696-0 (Version None)
Quarter: 2009Q4

REPORT INFORMATION
  Report Type: 
  Country: None (occurrence: None)
  Receive Date: 20091224
  Receipt Date: 20091211
  Transmission Date: 20100525
  Serious: Yes (Other)
  Sender: FDA-Public Use
  Company Number: DSA_41848_2009

PATIENT
  Age: 44 Year
  Sex: Female

DRUGS (5)
  1. ENALAPRIL MALEATE [Suspect]
     Indication: HYPERTENSION
     Dosage: (10 MG QD ORAL) ; (10 MG QD ORAL)
     Route: 048
     Dates: start: 20080901, end: 20090901
  2. ENALAPRIL MALEATE [Suspect]
     Indication: HYPERTENSION
     Dosage: (10 MG QD ORAL) ; (10 MG QD ORAL)
     Route: 048
     Dates: start: 20090921
  3. ATENOLOL [Concomitant]
  4. PURAN T4 [Concomitant]
  5. RITMONORM [Concomitant]

REACTIONS (2)
  - HYPERTENSIVE CRISIS [None]
  - TABLET ISSUE [None]
